FAERS Safety Report 5070265-4 (Version None)
Quarter: 2006Q3

REPORT INFORMATION
  Report Type: 
  Country: None (occurrence: None)
  Receive Date: 20060714
  Receipt Date: 20060411
  Transmission Date: 20061208
  Serious: No
  Sender: FDA-Public Use
  Company Number: 2006SP001646

PATIENT
  Age: 49 Year
  Sex: Female
  Weight: 77.1115 kg

DRUGS (4)
  1. LUNESTA [Suspect]
     Indication: INSOMNIA
     Dosage: 1 MG;1X;ORAL
     Route: 048
     Dates: start: 20060301, end: 20060301
  2. EFFEXOR [Concomitant]
  3. VERAPAMIL [Concomitant]
  4. TOPIRAMATE [Concomitant]

REACTIONS (2)
  - HEART RATE INCREASED [None]
  - PARADOXICAL DRUG REACTION [None]
